FAERS Safety Report 19372262 (Version 1)
Quarter: 2021Q2

REPORT INFORMATION
  Report Type: Spontaneous
  Country: US (occurrence: US)
  Receive Date: 20210603
  Receipt Date: 20210603
  Transmission Date: 20210717
  Serious: Yes (Hospitalization)
  Sender: FDA-Public Use
  Company Number: None

PATIENT
  Age: 10 Year
  Sex: Female
  Weight: 29.7 kg

DRUGS (3)
  1. BD CHLORAPREP 1.5ML [Concomitant]
     Dates: start: 20210416
  2. BD CHLORAPREP 3ML [Concomitant]
     Dates: end: 20210416
  3. CHLORAPREP [Suspect]
     Active Substance: CHLORHEXIDINE GLUCONATE\ISOPROPYL ALCOHOL
     Indication: ANTIBIOTIC PROPHYLAXIS
     Dosage: ?          OTHER FREQUENCY:WEEKLY/PRN;?
     Route: 061

REACTIONS (3)
  - Aspergillus test positive [None]
  - Systemic infection [None]
  - Recalled product [None]

NARRATIVE: CASE EVENT DATE: 20210527
